FAERS Safety Report 5678793-5 (Version None)
Quarter: 2008Q1

REPORT INFORMATION
  Report Type: 
  Country: None (occurrence: None)
  Receive Date: 20080320
  Receipt Date: 20080313
  Transmission Date: 20080703
  Serious: Yes (Death)
  Sender: FDA-Public Use
  Company Number: 100#08#2008-01503

PATIENT
  Age: 82 Year
  Sex: Female

DRUGS (14)
  1. ALENDRONIC ACID [Suspect]
     Indication: BONE DENSITY DECREASED
     Dosage: 70 MG/WEEK
  2. PHENPROCOUMON (PHENPROCOUMON) [Suspect]
     Indication: ATRIAL FIBRILLATION
  3. METHYLPREDNISOLONE [Suspect]
     Indication: TEMPORAL ARTERITIS
     Dosage: 32 MG, 24 MG, 16 MG, 12 MG
  4. METHYLPREDNISOLONE [Suspect]
     Indication: TEMPORAL ARTERITIS
     Dosage: 32 MG, 24 MG, 16 MG, 12 MG
  5. METHYLPREDNISOLONE [Suspect]
     Indication: TEMPORAL ARTERITIS
     Dosage: 32 MG, 24 MG, 16 MG, 12 MG
  6. VIGTAMIN D SUPPLEMENTS (VITAMIN D) [Suspect]
     Indication: BONE DENSITY DECREASED
     Dosage: 80 IE
  7. CALCIUM SUPPLEMENTS (CALCIUM) [Suspect]
     Indication: BONE DENSITY DECREASED
     Dosage: 1000 MG
  8. FUROSEMIDE [Concomitant]
  9. LISINOPRIL [Concomitant]
  10. CELIPROLOL (CELIPROLOL) [Concomitant]
  11. CITALOPRAM HYDROBROMIDE [Concomitant]
  12. ESOMEPRAZOLE (ESOMEPRAZOLE) [Concomitant]
  13. MAGNESIUM SUPPLEMENTS (MAGNESIUM) [Concomitant]
  14. VITAMIN COMPLEX (VITAMIN COMPLEX) [Concomitant]

REACTIONS (11)
  - BLOOD UREA INCREASED [None]
  - BONE DENSITY DECREASED [None]
  - CALCIPHYLAXIS [None]
  - CYANOSIS [None]
  - DECREASED APPETITE [None]
  - ECCHYMOSIS [None]
  - FATIGUE [None]
  - PROTEIN S DECREASED [None]
  - SKIN NECROSIS [None]
  - TEMPORAL ARTERITIS [None]
  - TOE AMPUTATION [None]
